FAERS Safety Report 16012280 (Version 2)
Quarter: 2019Q3

REPORT INFORMATION
  Report Type: Spontaneous
  Country: US (occurrence: US)
  Receive Date: 20190227
  Receipt Date: 20190905
  Transmission Date: 20191004
  Serious: No
  Sender: FDA-Public Use
  Company Number: US-MYLANLABS-2019M1014281

PATIENT
  Age: 67 Year
  Sex: Female
  Weight: 65 kg

DRUGS (4)
  1. FENTANYL TRANSDERMAL SYSTEM [Suspect]
     Active Substance: FENTANYL
     Indication: COMPLEX REGIONAL PAIN SYNDROME
     Dosage: 75 MICROGRAM, QH
     Route: 062
     Dates: start: 2018
  2. FENTANYL TRANSDERMAL SYSTEM [Suspect]
     Active Substance: FENTANYL
     Dosage: 2 DOSAGE FORM, Q2D
     Route: 062
  3. METHADONE [Concomitant]
     Active Substance: METHADONE HYDROCHLORIDE
     Indication: BREAKTHROUGH PAIN
     Dosage: UNK
  4. FENTANYL TRANSDERMAL SYSTEM [Suspect]
     Active Substance: FENTANYL
     Dosage: UNK UNK, Q2D
     Dates: start: 201812, end: 201902

REACTIONS (2)
  - Blood pressure abnormal [Recovered/Resolved]
  - Drug ineffective [Unknown]
